FAERS Safety Report 10185691 (Version 1)
Quarter: 2014Q2

REPORT INFORMATION
  Report Type: Spontaneous
  Country: US (occurrence: US)
  Receive Date: 20140521
  Receipt Date: 20140521
  Transmission Date: 20141212
  Serious: No
  Sender: FDA-Public Use
  Company Number: US-009507513-1405USA005043

PATIENT
  Age: 11 Year
  Sex: Male
  Weight: 36.28 kg

DRUGS (1)
  1. CLARITIN ORAL SOLUTION [Suspect]
     Indication: SEASONAL ALLERGY
     Dosage: 10 MG, BID
     Route: 048
     Dates: start: 20140425, end: 20140425

REACTIONS (1)
  - Overdose [Recovering/Resolving]
